FAERS Safety Report 5248357-6 (Version None)
Quarter: 2007Q1

REPORT INFORMATION
  Report Type: 
  Country: None (occurrence: None)
  Receive Date: 20070222
  Receipt Date: 20070208
  Transmission Date: 20070707
  Serious: Yes (Life-Threatening, Hospitalization, Disabling)
  Sender: FDA-Public Use
  Company Number: 07-008

PATIENT
  Age: 25 Year
  Sex: Female

DRUGS (3)
  1. PHENDIMETRAZINE TARTRATE [Suspect]
     Indication: WEIGHT DECREASED
     Dosage: 1 TABLET MORNING, 1 TABLET BEFORE LUNCH AND DINNER
     Dates: start: 20050729, end: 20051120
  2. FASTIN [Suspect]
     Indication: WEIGHT DECREASED
     Dosage: 1 TABLET IN THE MORNING
     Dates: start: 20050630, end: 20051120
  3. PRILOSEC [Concomitant]

REACTIONS (9)
  - CHEST DISCOMFORT [None]
  - CHOLECYSTECTOMY [None]
  - DYSPNOEA [None]
  - FLATULENCE [None]
  - GENERALISED OEDEMA [None]
  - PAIN [None]
  - PRESYNCOPE [None]
  - PULMONARY HYPERTENSION [None]
  - THERAPEUTIC RESPONSE UNEXPECTED WITH DRUG SUBSTITUTION [None]
